FAERS Safety Report 7233017-2 (Version None)
Quarter: 2011Q1

REPORT INFORMATION
  Report Type: 
  Country: None (occurrence: None)
  Receive Date: 20110119
  Receipt Date: 20110105
  Transmission Date: 20110831
  Serious: Yes (Hospitalization)
  Sender: FDA-Public Use
  Company Number: JP-ACTELION-A-CH2010-37084

PATIENT
  Sex: Male
  Weight: 73 kg

DRUGS (21)
  1. URSODIOL [Concomitant]
  2. ASPIRIN [Suspect]
     Dosage: UNK
     Dates: start: 20040101, end: 20090713
  3. BERAPROST SODIUM [Concomitant]
  4. BOSENTAN TABLET 62.5 MG JPN [Suspect]
     Dosage: 62.5 MG, BID
     Route: 048
     Dates: start: 20090521, end: 20090630
  5. OXYGEN [Concomitant]
  6. FAMOTIDINE [Concomitant]
  7. ETIZOLAM [Concomitant]
  8. SPIRONOLACTONE [Concomitant]
  9. WARFARIN POTASSIUM [Suspect]
     Dosage: UNK
     Dates: start: 20040101, end: 20090713
  10. ALLOPURINOL [Concomitant]
  11. ZOLPIDEM TARTRATE [Concomitant]
  12. EPLERENONE [Concomitant]
  13. LEVOTHYROXINE SODIUM [Concomitant]
  14. METILDIGOXIN [Concomitant]
  15. FUROSEMIDE [Concomitant]
  16. TAMSULOSIN HYDROCHLORIDE [Concomitant]
  17. PIMOBENDAN [Concomitant]
  18. BOSENTAN TABLET 62.5 MG JPN [Suspect]
     Indication: PULMONARY ARTERIAL HYPERTENSION
     Dosage: 62.5 MG, TID
     Route: 048
     Dates: start: 20090701, end: 20090730
  19. BOSENTAN TABLET 62.5 MG JPN [Suspect]
     Dosage: 125 MG, BID
     Route: 048
     Dates: start: 20090731
  20. SILDENAFIL CITRATE [Concomitant]
  21. EPALRESTAT [Concomitant]

REACTIONS (6)
  - CARDIAC FAILURE [None]
  - OEDEMA PERIPHERAL [None]
  - PULMONARY HAEMORRHAGE [None]
  - SCROTAL SWELLING [None]
  - OXYGEN SATURATION DECREASED [None]
  - HAEMOGLOBIN DECREASED [None]
